FAERS Safety Report 7922219-5 (Version None)
Quarter: 2011Q4

REPORT INFORMATION
  Report Type: 
  Country: None (occurrence: None)
  Receive Date: 20111117
  Receipt Date: 20111107
  Transmission Date: 20120403
  Serious: Yes (Other)
  Sender: FDA-Public Use
  Company Number: US-MPIJNJ-2011-05389

PATIENT
  Age: 62 Year
  Sex: Female

DRUGS (6)
  1. VELCADE [Suspect]
     Indication: MULTIPLE MYELOMA
  2. CYCLOPHOSPHAMIDE [Suspect]
     Indication: MULTIPLE MYELOMA
  3. DEXAMETHASONE [Suspect]
     Indication: MULTIPLE MYELOMA
  4. DOXORUBICIN HCL [Suspect]
     Indication: MULTIPLE MYELOMA
  5. CISPLATIN [Suspect]
     Indication: MULTIPLE MYELOMA
  6. ETOPOSIDE [Suspect]
     Indication: MULTIPLE MYELOMA

REACTIONS (8)
  - CARDIOMEGALY [None]
  - EJECTION FRACTION DECREASED [None]
  - WHITE BLOOD CELL COUNT DECREASED [None]
  - PLEURAL EFFUSION [None]
  - DYSPNOEA [None]
  - ATELECTASIS [None]
  - HYPOXIA [None]
  - CONFUSIONAL STATE [None]
